APPROVED DRUG PRODUCT: MIRALAX
Active Ingredient: POLYETHYLENE GLYCOL 3350
Strength: 17GM/PACKET
Dosage Form/Route: FOR SOLUTION;ORAL
Application: N022015 | Product #002
Applicant: BAYER HEALTHCARE LLC
Approved: Oct 6, 2006 | RLD: Yes | RS: Yes | Type: OTC